FAERS Safety Report 5777155-X (Version None)
Quarter: 2008Q2

REPORT INFORMATION
  Report Type: 
  Country: None (occurrence: None)
  Receive Date: 20080617
  Receipt Date: 20080617
  Transmission Date: 20081010
  Serious: Yes (Life-Threatening, Other)
  Sender: FDA-Public Use
  Company Number: None

PATIENT
  Age: 30 Year
  Sex: Female
  Weight: 55.3388 kg

DRUGS (2)
  1. BUDEPRION  XL      TEVA [Suspect]
     Indication: ANXIETY
     Dosage: 300 MG   1 X PER DAY  PO
     Route: 048
     Dates: start: 20080523, end: 20080615
  2. BUDEPRION  XL      TEVA [Suspect]
     Indication: DEPRESSION
     Dosage: 300 MG   1 X PER DAY  PO
     Route: 048
     Dates: start: 20080523, end: 20080615

REACTIONS (16)
  - ABNORMAL BEHAVIOUR [None]
  - AMNESIA [None]
  - APHASIA [None]
  - ARTHRALGIA [None]
  - CRYING [None]
  - DISTURBANCE IN ATTENTION [None]
  - DIZZINESS [None]
  - DYSPHEMIA [None]
  - FEELING ABNORMAL [None]
  - IRRITABILITY [None]
  - NAUSEA [None]
  - OBSESSIVE THOUGHTS [None]
  - PHARMACEUTICAL PRODUCT COMPLAINT [None]
  - SELF-INJURIOUS IDEATION [None]
  - SPEECH DISORDER [None]
  - TREMOR [None]
